FAERS Safety Report 8565121-0 (Version None)
Quarter: 2012Q3

REPORT INFORMATION
  Report Type: 
  Country: None (occurrence: None)
  Receive Date: 20120803
  Receipt Date: 20120731
  Transmission Date: 20120928
  Serious: No
  Sender: FDA-Public Use
  Company Number: US-PFIZER INC-2012145112

PATIENT
  Sex: Female
  Weight: 73.9 kg

DRUGS (6)
  1. OXYCODONE [Concomitant]
     Indication: PAIN
     Dosage: ^5/325MG^ ONCE A WEEK
  2. FENTANYL [Concomitant]
     Dosage: 25 MG, EVERY 3 DAYS
     Route: 062
  3. ENALAPRIL [Concomitant]
     Indication: HYPERTENSION
     Dosage: 5 MG, 1X/DAY
     Route: 048
  4. LYRICA [Suspect]
     Indication: NEUROPATHY PERIPHERAL
     Dosage: 150 MG, 2X/DAY
     Route: 048
  5. OMEPRAZOLE [Concomitant]
     Dosage: 20 MG, 1X/DAY
     Route: 048
  6. LYRICA [Suspect]
     Indication: NERVE INJURY
     Dosage: 100 MG, 2X/DAY
     Route: 048
     Dates: start: 20110101

REACTIONS (1)
  - DRY MOUTH [None]
